FAERS Safety Report 13416458 (Version 1)
Quarter: 2017Q2

REPORT INFORMATION
  Report Type: Spontaneous
  Country: US (occurrence: US)
  Receive Date: 20170406
  Receipt Date: 20170406
  Transmission Date: 20170830
  Serious: Yes (Other)
  Sender: FDA-Public Use
  Company Number: US-MYLANLABS-2017M1019676

PATIENT

DRUGS (1)
  1. LEVOTHYROXINE. [Suspect]
     Active Substance: LEVOTHYROXINE
     Indication: PRODUCT USED FOR UNKNOWN INDICATION
     Dosage: UKN

REACTIONS (13)
  - Visual impairment [Unknown]
  - Headache [Unknown]
  - Hypoglycaemia [Unknown]
  - Fall [Unknown]
  - Hypersensitivity [Unknown]
  - Nervousness [Unknown]
  - Coma [Unknown]
  - Blood pressure decreased [Unknown]
  - Poisoning [Unknown]
  - Loss of consciousness [Unknown]
  - Dyspnoea [Unknown]
  - Feeling abnormal [Unknown]
  - Parosmia [Unknown]
